FAERS Safety Report 4363781-1 (Version None)
Quarter: 2004Q2

REPORT INFORMATION
  Report Type: 
  Country: None (occurrence: None)
  Receive Date: 20040521
  Receipt Date: 20040504
  Transmission Date: 20050107
  Serious: Yes (Congenital Anomaly)
  Sender: FDA-Public Use
  Company Number: 2004CG00857

PATIENT
  Sex: Female
  Weight: 4.28 kg

DRUGS (9)
  1. PULMICORT [Suspect]
     Indication: ASTHMA
     Dosage: 400 UG BID TPL
     Route: 061
     Dates: start: 20030501
  2. OXEOL [Suspect]
     Indication: ASTHMA
     Dosage: 1 DF DAILY TPL
     Route: 061
     Dates: start: 20030501, end: 20030602
  3. SEREVENT [Suspect]
     Dates: start: 20030606
  4. POLARAMINE [Suspect]
     Dates: start: 20030606
  5. BECOTIDE [Suspect]
     Dates: start: 20030501
  6. SINGULAIR ^DIECKMANN^ [Concomitant]
  7. CLARITIN [Concomitant]
  8. SURBRONC [Concomitant]
  9. VENTOLIN [Concomitant]

REACTIONS (2)
  - CONGENITAL CYSTIC LUNG [None]
  - MATERNAL DRUGS AFFECTING FOETUS [None]
